FAERS Safety Report 4615143-7 (Version None)
Quarter: 2005Q1

REPORT INFORMATION
  Report Type: 
  Country: None (occurrence: None)
  Receive Date: 20050315
  Receipt Date: 20050218
  Transmission Date: 20050727
  Serious: Yes (Other)
  Sender: FDA-Public Use
  Company Number: US_0411107577

PATIENT
  Sex: Female
  Weight: 111 kg

DRUGS (10)
  1. ZYPREXA [Suspect]
     Dates: start: 19960101
  2. OLANZIPINE/FLUOXETINE [Concomitant]
  3. QUETIAPINE FUMARATE [Concomitant]
  4. ZIPRASIDONE [Concomitant]
  5. HALDOL (HALOPERIDOL DECANOATE) [Concomitant]
  6. DIVALPROEX SODIUM [Concomitant]
  7. BUPROPION HCL [Concomitant]
  8. CITALOPRAM HYDROBROMIDE [Concomitant]
  9. GLIPIZIDE [Concomitant]
  10. GLYBURIDE AND METFORMIN HCL [Concomitant]

REACTIONS (4)
  - DIABETES MELLITUS [None]
  - HYSTERECTOMY [None]
  - INJURY [None]
  - WEIGHT INCREASED [None]
